FAERS Safety Report 20502299 (Version 1)
Quarter: 2022Q1

REPORT INFORMATION
  Report Type: Spontaneous
  Country: US (occurrence: US)
  Receive Date: 20220222
  Receipt Date: 20220222
  Transmission Date: 20220423
  Serious: No
  Sender: FDA-Public Use
  Company Number: US-NOVOPROD-829124

PATIENT
  Age: 44 Year
  Sex: Female

DRUGS (3)
  1. SAXENDA [Suspect]
     Active Substance: LIRAGLUTIDE
     Indication: Product used for unknown indication
     Dosage: 0.6 MG, QD
     Route: 058
     Dates: start: 20210629, end: 20210708
  2. MOMETASONE FUROATE [Concomitant]
     Active Substance: MOMETASONE FUROATE
     Indication: Product used for unknown indication
     Dosage: 0.1 %, APPLY TO AFFECTED AREAS
     Route: 061
  3. PHENTERMINE;TOPIRAMATE [Concomitant]
     Indication: Product used for unknown indication
     Dosage: 7.5 MG-46MG 1 CAPSULE DAILY, STOP DATE 08-08-2021
     Route: 048

REACTIONS (7)
  - Vitamin D decreased [Unknown]
  - Progesterone decreased [Unknown]
  - Hyperlipidaemia [Unknown]
  - Gastrointestinal disorder [Recovered/Resolved]
  - Vomiting [Recovered/Resolved]
  - Dehydration [Unknown]
  - Nausea [Recovered/Resolved]

NARRATIVE: CASE EVENT DATE: 20210101
